FAERS Safety Report 4476923-4 (Version None)
Quarter: 2004Q4

REPORT INFORMATION
  Report Type: 
  Country: None (occurrence: None)
  Receive Date: 20041013
  Receipt Date: 20041004
  Transmission Date: 20050328
  Serious: Yes (Other)
  Sender: FDA-Public Use
  Company Number: 200414082BCC

PATIENT
  Age: 74 Year
  Sex: Male
  Weight: 81.6475 kg

DRUGS (3)
  1. ORIGINAL ALKA-SELTZER TABLETS [Suspect]
     Indication: INFLUENZA
     Dosage: 650 MG, ONCE, ORAL
     Route: 048
     Dates: start: 20031001
  2. ORIGINAL ALKA-SELTZER TABLETS [Suspect]
     Indication: NASOPHARYNGITIS
     Dosage: 650 MG, ONCE, ORAL
     Route: 048
     Dates: start: 20031001
  3. VITAMIN E [Concomitant]

REACTIONS (1)
  - URINARY TRACT INFECTION [None]
